FAERS Safety Report 19447596 (Version 1)
Quarter: 2021Q2

REPORT INFORMATION
  Report Type: Spontaneous
  Country: US (occurrence: US)
  Receive Date: 20210622
  Receipt Date: 20210622
  Transmission Date: 20210717
  Serious: Yes (Other)
  Sender: FDA-Public Use
  Company Number: None

PATIENT

DRUGS (1)
  1. ATORVASTATIN CALCIUM. [Suspect]
     Active Substance: ATORVASTATIN CALCIUM
     Route: 048
     Dates: start: 20210408, end: 20210408

REACTIONS (3)
  - Product use complaint [None]
  - Product solubility abnormal [None]
  - Choking [None]

NARRATIVE: CASE EVENT DATE: 20210408
